FAERS Safety Report 6095779-X (Version None)
Quarter: 2009Q1

REPORT INFORMATION
  Report Type: 
  Country: None (occurrence: None)
  Receive Date: 20090227
  Receipt Date: 20080613
  Transmission Date: 20090719
  Serious: No
  Sender: FDA-Public Use
  Company Number: A0732917A

PATIENT
  Age: 58 Year
  Sex: Female

DRUGS (12)
  1. LAMICTAL [Suspect]
     Dosage: 200MG PER DAY
     Route: 048
  2. PARNATE [Suspect]
     Indication: DEPRESSION
     Dosage: 90MG PER DAY
     Route: 048
  3. HALOPERIDOL [Concomitant]
  4. MOBAN [Concomitant]
  5. TRIAMTERENE AND HYDROCHLOROTHIAZIDE [Concomitant]
  6. SYNTHROID [Concomitant]
  7. DIAZEPAM [Concomitant]
  8. ACTONEL [Concomitant]
  9. ESTRACE [Concomitant]
  10. PROTOPIC [Concomitant]
  11. FLUCONAZOLE [Concomitant]
  12. PREMPRO [Concomitant]

REACTIONS (2)
  - ANXIETY [None]
  - WEIGHT DECREASED [None]
